FAERS Safety Report 20205547 (Version 2)
Quarter: 2023Q1

REPORT INFORMATION
  Report Type: Spontaneous
  Country: DE (occurrence: DE)
  Receive Date: 20211220
  Receipt Date: 20230116
  Transmission Date: 20230417
  Serious: Yes (Hospitalization)
  Sender: FDA-Public Use
  Company Number: None

PATIENT
  Age: 67 Year
  Sex: Male

DRUGS (3)
  1. PREDNISOLONE [Suspect]
     Active Substance: PREDNISOLONE
     Indication: Product used for unknown indication
     Dosage: 5 MG, QD (1-0-0-0, TABLETTEN)
     Route: 048
  2. FENOTEROL [Suspect]
     Active Substance: FENOTEROL
     Indication: Product used for unknown indication
     Dosage: 0.1 MG, BEDARF, DOSIERAEROSOL
     Route: 055
  3. LEVOTHYROXINE SODIUM [Concomitant]
     Active Substance: LEVOTHYROXINE SODIUM
     Indication: Product used for unknown indication
     Dosage: 0.075 MG, QD (1-0-0-0, TABLETTEN)
     Route: 048

REACTIONS (5)
  - Dyspnoea [Unknown]
  - Pain [Unknown]
  - Atrial flutter [Unknown]
  - Hypertensive crisis [Unknown]
  - Dyspnoea exertional [Unknown]
